FAERS Safety Report 17137895 (Version 1)
Quarter: 2019Q4

REPORT INFORMATION
  Report Type: Spontaneous
  Country: US (occurrence: US)
  Receive Date: 20191211
  Receipt Date: 20191211
  Transmission Date: 20200122
  Serious: Yes (Death)
  Sender: FDA-Public Use
  Company Number: US-ROCHE-2492583

PATIENT
  Age: 77 Year
  Sex: Male

DRUGS (1)
  1. CELLCEPT [Suspect]
     Active Substance: MYCOPHENOLATE MOFETIL\MYCOPHENOLATE MOFETIL HYDROCHLORIDE
     Indication: HEART TRANSPLANT
     Dosage: PILL
     Route: 048
     Dates: end: 20190206

REACTIONS (2)
  - Death [Fatal]
  - Weight fluctuation [Recovered/Resolved]

NARRATIVE: CASE EVENT DATE: 20190206
